FAERS Safety Report 9407969 (Version 1)
Quarter: 2013Q3

REPORT INFORMATION
  Report Type: Spontaneous
  Country: FR (occurrence: FR)
  Receive Date: 20130718
  Receipt Date: 20130718
  Transmission Date: 20140515
  Serious: Yes (Hospitalization)
  Sender: FDA-Public Use
  Company Number: FR-ELI_LILLY_AND_COMPANY-FR201307003763

PATIENT
  Age: 46 Year
  Sex: Male
  Weight: 51 kg

DRUGS (15)
  1. EFIENT [Suspect]
     Indication: STENT PLACEMENT
     Dosage: UNK
     Route: 048
     Dates: start: 201211, end: 201211
  2. ISOPTINE [Concomitant]
  3. CRESTOR [Concomitant]
     Indication: MYOCARDIAL INFARCTION
  4. AMLODIPINE [Concomitant]
  5. PLAVIX [Concomitant]
  6. KIVEXA [Concomitant]
  7. RETROVIR [Concomitant]
  8. NORVIR [Concomitant]
  9. PREZISTA [Concomitant]
  10. UVEDOSE [Concomitant]
  11. INEXIUM [Concomitant]
  12. DUOPLAVIN [Concomitant]
  13. AMLOR [Concomitant]
  14. BISOPROLOL [Concomitant]
  15. SUBUTEX [Concomitant]

REACTIONS (1)
  - Rhabdomyolysis [Recovered/Resolved]
